FAERS Safety Report 17616679 (Version 5)
Quarter: 2020Q2

REPORT INFORMATION
  Report Type: Spontaneous
  Country: PT (occurrence: PT)
  Receive Date: 20200402
  Receipt Date: 20200619
  Transmission Date: 20200713
  Serious: Yes (Death)
  Sender: FDA-Public Use
  Company Number: PT-PFIZER INC-2020136328

PATIENT
  Age: 57 Year
  Sex: Female

DRUGS (5)
  1. DIAZEPAM. [Interacting]
     Active Substance: DIAZEPAM
     Indication: DEPRESSION
     Dosage: UNK
  2. ESTAZOLAM. [Interacting]
     Active Substance: ESTAZOLAM
     Indication: DEPRESSION
     Dosage: UNK
  3. TIANEPTINE [Interacting]
     Active Substance: TIANEPTINE
     Indication: DEPRESSION
     Dosage: UNK
  4. TAMOXIFEN [Concomitant]
     Active Substance: TAMOXIFEN
     Indication: HER2 POSITIVE BREAST CANCER
     Dosage: UNK
     Dates: start: 200809
  5. TRASTUZUMAB. [Suspect]
     Active Substance: TRASTUZUMAB
     Indication: HER2 POSITIVE BREAST CANCER
     Dosage: UNK (LAST INFUSION ON 9 MARCH)
     Dates: start: 200810, end: 20090309

REACTIONS (3)
  - Cardiac death [Fatal]
  - Drug interaction [Fatal]
  - Arrhythmia [Fatal]

NARRATIVE: CASE EVENT DATE: 200903
